FAERS Safety Report 19514080 (Version 2)
Quarter: 2022Q1

REPORT INFORMATION
  Report Type: Spontaneous
  Country: US (occurrence: None)
  Receive Date: 20210709
  Receipt Date: 20220301
  Transmission Date: 20220424
  Serious: Yes (Other)
  Sender: FDA-Public Use
  Company Number: 2021A591726

PATIENT
  Age: 51 Year
  Sex: Female
  Weight: 99.8 kg

DRUGS (56)
  1. NEXIUM [Suspect]
     Active Substance: ESOMEPRAZOLE MAGNESIUM
     Indication: Gastrooesophageal reflux disease
     Route: 048
     Dates: start: 1997, end: 2020
  2. NEXIUM [Suspect]
     Active Substance: ESOMEPRAZOLE MAGNESIUM
     Indication: Gastrooesophageal reflux disease
     Route: 048
     Dates: start: 2001, end: 2020
  3. NEXIUM [Suspect]
     Active Substance: ESOMEPRAZOLE MAGNESIUM
     Indication: Gastrooesophageal reflux disease
     Route: 048
     Dates: start: 2016, end: 2020
  4. PRILOSEC [Suspect]
     Active Substance: OMEPRAZOLE MAGNESIUM
     Indication: Gastrooesophageal reflux disease
     Route: 048
     Dates: start: 1997, end: 2020
  5. PRILOSEC [Suspect]
     Active Substance: OMEPRAZOLE MAGNESIUM
     Indication: Gastrooesophageal reflux disease
     Dosage: GENERIC
     Route: 065
     Dates: start: 2013
  6. PREVACID [Suspect]
     Active Substance: LANSOPRAZOLE
     Indication: Gastrooesophageal reflux disease
     Route: 065
     Dates: start: 1997, end: 2020
  7. PROTONIX [Suspect]
     Active Substance: PANTOPRAZOLE SODIUM
     Indication: Gastrooesophageal reflux disease
     Route: 065
     Dates: start: 1997, end: 2020
  8. PROTONIX [Suspect]
     Active Substance: PANTOPRAZOLE SODIUM
     Indication: Gastrooesophageal reflux disease
     Route: 065
     Dates: start: 2000, end: 2020
  9. LEVOFLOXACIN [Concomitant]
     Active Substance: LEVOFLOXACIN
     Indication: Infection
     Dates: start: 2011
  10. AZITHROMYCIN [Concomitant]
     Active Substance: AZITHROMYCIN
     Indication: Infection
     Dates: start: 2011
  11. AZITHROMYCIN [Concomitant]
     Active Substance: AZITHROMYCIN
     Indication: Infection
     Dates: start: 2012
  12. AZITHROMYCIN [Concomitant]
     Active Substance: AZITHROMYCIN
     Indication: Infection
     Dates: start: 2014
  13. AZITHROMYCIN [Concomitant]
     Active Substance: AZITHROMYCIN
     Indication: Infection
     Dates: start: 2016
  14. AZITHROMYCIN [Concomitant]
     Active Substance: AZITHROMYCIN
     Indication: Infection
     Dates: start: 2017
  15. FUROSEMIDE [Concomitant]
     Active Substance: FUROSEMIDE
     Indication: Hypertension
     Dates: start: 2012
  16. TRAMADOL [Concomitant]
     Active Substance: TRAMADOL
     Indication: Pain
     Dates: start: 2012
  17. TRAMADOL [Concomitant]
     Active Substance: TRAMADOL
     Indication: Pain
     Dates: start: 2013
  18. TRAMADOL [Concomitant]
     Active Substance: TRAMADOL
     Indication: Pain
     Dates: start: 2017
  19. TRAMADOL [Concomitant]
     Active Substance: TRAMADOL
     Indication: Pain
     Dates: start: 2018
  20. LOSARTAN [Concomitant]
     Active Substance: LOSARTAN
     Indication: Hypertension
     Dates: start: 2016
  21. CIPROFLOXACIN [Concomitant]
     Active Substance: CIPROFLOXACIN
     Indication: Infection
     Dates: start: 2017, end: 2021
  22. LEVAQUIN [Concomitant]
     Active Substance: LEVOFLOXACIN
     Indication: Infection
     Dates: start: 2010
  23. BENADRYL [Concomitant]
     Active Substance: DIPHENHYDRAMINE HYDROCHLORIDE
     Indication: Hypersensitivity
     Dates: start: 2010
  24. VITAMINS [Concomitant]
     Active Substance: VITAMINS
     Indication: Malaise
     Dates: start: 2010
  25. VITAMIN D [Concomitant]
     Active Substance: VITAMIN D NOS
     Indication: Malaise
     Dates: start: 2010
  26. FAMOTIDINE [Concomitant]
     Active Substance: FAMOTIDINE
     Dates: start: 2020
  27. PEPCID [Concomitant]
     Active Substance: FAMOTIDINE
  28. RANITIDINE [Concomitant]
     Active Substance: RANITIDINE
     Dates: start: 2012, end: 2018
  29. CARAFATE [Concomitant]
     Active Substance: SUCRALFATE
  30. CALCIUM [Concomitant]
     Active Substance: CALCIUM
  31. FLONASE [Concomitant]
     Active Substance: FLUTICASONE PROPIONATE
  32. ALLOPURINOL [Concomitant]
     Active Substance: ALLOPURINOL
  33. LYRICA [Concomitant]
     Active Substance: PREGABALIN
  34. MECLIZINE HYDROCHLORIDE [Concomitant]
     Active Substance: MECLIZINE HYDROCHLORIDE
  35. METOPROLOL SUCCINATE [Concomitant]
     Active Substance: METOPROLOL SUCCINATE
  36. SIMPONI [Concomitant]
     Active Substance: GOLIMUMAB
  37. SINGULAIR [Concomitant]
     Active Substance: MONTELUKAST SODIUM
  38. LEFLUNOMIDE [Concomitant]
     Active Substance: LEFLUNOMIDE
  39. POTASSIUM CHLORIDE [Concomitant]
     Active Substance: POTASSIUM CHLORIDE
  40. TORSEMIDE [Concomitant]
     Active Substance: TORSEMIDE
  41. TIZANIDINE HYDROCHLORIDE [Concomitant]
     Active Substance: TIZANIDINE HYDROCHLORIDE
  42. VOLTAREN [Concomitant]
     Active Substance: DICLOFENAC SODIUM
  43. METHOTREXATE [Concomitant]
     Active Substance: METHOTREXATE
  44. METHOTREXATE [Concomitant]
     Active Substance: METHOTREXATE
  45. PREDNISONE [Concomitant]
     Active Substance: PREDNISONE
  46. CEPHALEXIN [Concomitant]
     Active Substance: CEPHALEXIN
  47. MONTELUKAST [Concomitant]
     Active Substance: MONTELUKAST SODIUM
  48. ELIQUIS [Concomitant]
     Active Substance: APIXABAN
  49. MORPHINE [Concomitant]
     Active Substance: MORPHINE
  50. ENOXAPARIN [Concomitant]
     Active Substance: ENOXAPARIN
  51. NYSTATIN [Concomitant]
     Active Substance: NYSTATIN
  52. ROPINIROLE [Concomitant]
     Active Substance: ROPINIROLE
  53. DICLOFENAC SODIUM [Concomitant]
     Active Substance: DICLOFENAC SODIUM
  54. SUCRALFATE [Concomitant]
     Active Substance: SUCRALFATE
  55. SYMBICORT [Concomitant]
     Active Substance: BUDESONIDE\FORMOTEROL FUMARATE DIHYDRATE
  56. ALBUTEROL [Concomitant]
     Active Substance: ALBUTEROL

REACTIONS (2)
  - Chronic kidney disease [Not Recovered/Not Resolved]
  - Gastrooesophageal reflux disease [Not Recovered/Not Resolved]

NARRATIVE: CASE EVENT DATE: 20180101
